FAERS Safety Report 8978180 (Version 1)
Quarter: 2012Q4

REPORT INFORMATION
  Report Type: 
  Country: CH (occurrence: CH)
  Receive Date: 20121220
  Receipt Date: 20121220
  Transmission Date: 20130627
  Serious: Yes (Hospitalization, Other)
  Sender: FDA-Public Use
  Company Number: PHHY2012CH114414

PATIENT
  Age: 82 Year
  Sex: Female

DRUGS (5)
  1. SINTROM [Suspect]
     Indication: DEEP VEIN THROMBOSIS
     Dosage: 1 mg, UNK
     Route: 048
     Dates: start: 201201, end: 20121027
  2. CITALOPRAM [Suspect]
     Indication: ANTIDEPRESSANT THERAPY
     Dosage: 20 mg, QD
     Route: 048
  3. BELOC ZOK [Concomitant]
     Dosage: 25 mg, BID
     Route: 048
  4. CANDESARTAN CILEXETIL/HYDROCHLOORTHIAZIDE [Concomitant]
     Dosage: 1 DF, QD
     Route: 048
  5. DE-URSIL RR [Concomitant]
     Dosage: 450 mg, QD
     Route: 048

REACTIONS (5)
  - Skull fractured base [Unknown]
  - Hypertension [Unknown]
  - Fall [Unknown]
  - Subarachnoid haemorrhage [Recovering/Resolving]
  - Dysarthria [Unknown]
